FAERS Safety Report 8471503-8 (Version None)
Quarter: 2012Q2

REPORT INFORMATION
  Report Type: 
  Country: None (occurrence: None)
  Receive Date: 20120323
  Receipt Date: 20111130
  Transmission Date: 20120825
  Serious: Yes (Hospitalization)
  Sender: FDA-Public Use
  Company Number: 163-21880-11100378

PATIENT
  Age: 96 Year
  Sex: Female

DRUGS (6)
  1. LOPERAMIDE [Concomitant]
  2. REVLIMID [Suspect]
     Indication: MYELODYSPLASTIC SYNDROME
     Dosage: 5 MG, DAILY X 14 DAYS, PO; 5 MG, 1 IN 1 D, PO
     Route: 048
     Dates: start: 20091021
  3. REVLIMID [Suspect]
     Indication: MYELODYSPLASTIC SYNDROME
     Dosage: 5 MG, DAILY X 14 DAYS, PO; 5 MG, 1 IN 1 D, PO
     Route: 048
     Dates: start: 20091101
  4. FUROSEMIDE [Concomitant]
  5. DULOXETIME HYDROCHLORIDE [Concomitant]
  6. TRAZODONE HCL [Concomitant]

REACTIONS (1)
  - DEEP VEIN THROMBOSIS [None]
